FAERS Safety Report 4548467-2 (Version None)
Quarter: 2005Q1

REPORT INFORMATION
  Report Type: 
  Country: None (occurrence: None)
  Receive Date: 20050106
  Receipt Date: 20041222
  Transmission Date: 20050727
  Serious: Yes (Hospitalization)
  Sender: FDA-Public Use
  Company Number: 2004-0007710

PATIENT
  Age: 65 Year
  Sex: Male

DRUGS (4)
  1. TENOFOVIR DISOPROXIL FUMARATE (TENOFOVIR DISOPROXIL FUMARATE) [Suspect]
     Indication: HIV INFECTION
     Dosage: 300 MG, 1 IN 1 D, ORAL
     Route: 048
     Dates: start: 20020319, end: 20041001
  2. ATAZANAVIR (ATAZANAVIR) [Suspect]
     Indication: HIV INFECTION
     Dosage: 100 MG, 1 IN 1 D, ORAL
     Route: 048
     Dates: start: 20020304, end: 20041001
  3. STAVUDINE (STAVUDINE) [Suspect]
     Indication: HIV INFECTION
     Dosage: 40 MG, 1 IN 1 D, ORAL
     Route: 048
     Dates: start: 20020304, end: 20041001
  4. NORVIR [Suspect]
     Indication: HIV INFECTION
     Dosage: 100 MG, 1 IN 1 D, ORAL
     Route: 048
     Dates: start: 20020304, end: 20041001

REACTIONS (2)
  - CYSTITIS [None]
  - PANCREATITIS [None]
